FAERS Safety Report 9659703 (Version 1)
Quarter: 2013Q4

REPORT INFORMATION
  Report Type: Spontaneous
  Country: BR (occurrence: BR)
  Receive Date: 20131031
  Receipt Date: 20131031
  Transmission Date: 20140711
  Serious: Yes (Other)
  Sender: FDA-Public Use
  Company Number: BR-BAYER-2013-132343

PATIENT
  Age: 45 Year
  Sex: Female
  Weight: 54 kg

DRUGS (5)
  1. QLAIRA [Suspect]
     Indication: CONTRACEPTION
     Dosage: 1 DF, QD
     Route: 048
     Dates: start: 20131028
  2. QLAIRA [Suspect]
     Indication: MENORRHAGIA
  3. ATACAND [CANDESARTAN CILEXETIL,HYDROCHLOROTHIAZIDE] [Concomitant]
     Indication: RENAL DISORDER
     Dosage: 1 DF, BID
     Route: 048
     Dates: start: 2000
  4. NEUTROFER [Concomitant]
     Indication: MINERAL SUPPLEMENTATION
     Dosage: 1 DF, QD
     Route: 048
  5. LANTUS [Concomitant]
     Indication: TYPE 1 DIABETES MELLITUS
     Dosage: 18 U, UNK
     Route: 058
     Dates: start: 2000

REACTIONS (2)
  - Convulsion [Recovered/Resolved]
  - Hypoglycaemia [Recovered/Resolved]
